FAERS Safety Report 8747730 (Version 3)
Quarter: 2013Q2

REPORT INFORMATION
  Report Type: Report from Study
  Country: AR (occurrence: AR)
  Receive Date: 20120827
  Receipt Date: 20130416
  Transmission Date: 20140414
  Serious: Yes (Other)
  Sender: FDA-Public Use
  Company Number: PHHY2012AR073292

PATIENT
  Age: 68 Year
  Sex: Female

DRUGS (3)
  1. DIOVAN [Suspect]
     Indication: HYPERTENSION
     Dosage: 80 MG, DAILY
     Route: 048
     Dates: start: 2008, end: 201210
  2. EXFORGE [Suspect]
     Indication: HYPERTENSION
     Dosage: 1 DF, (5/160), DAILY
     Route: 048
     Dates: start: 201210
  3. PRETERAX                           /01421201/ [Concomitant]
     Dosage: UNK UKN, UNK

REACTIONS (7)
  - Asthma [Recovered/Resolved]
  - Blood pressure systolic increased [Recovered/Resolved]
  - Blood glucose increased [Recovered/Resolved]
  - Muscle spasms [Recovered/Resolved]
  - Epigastric discomfort [Recovered/Resolved]
  - Cough [Recovered/Resolved]
  - Blood pressure decreased [Recovered/Resolved]
